FAERS Safety Report 9029733 (Version 1)
Quarter: 2013Q1

REPORT INFORMATION
  Report Type: Spontaneous
  Country: US (occurrence: US)
  Receive Date: 20130124
  Receipt Date: 20130124
  Transmission Date: 20140127
  Serious: No
  Sender: FDA-Public Use
  Company Number: US-009507513-1301USA011319

PATIENT
  Sex: Female

DRUGS (2)
  1. CLARITIN [Suspect]
     Indication: SNEEZING
     Dosage: UNK, QD
     Route: 048
     Dates: start: 20130117
  2. CLARITIN [Suspect]
     Indication: COUGH

REACTIONS (1)
  - Drug ineffective [Unknown]
